FAERS Safety Report 9916907 (Version 2)
Quarter: 2014Q1

REPORT INFORMATION
  Report Type: Spontaneous
  Country: US (occurrence: US)
  Receive Date: 20140221
  Receipt Date: 20140221
  Transmission Date: 20141002
  Serious: Yes (Disabling)
  Sender: FDA-Public Use
  Company Number: US-GE HEALTHCARE MEDICAL DIAGNOSTICS-OSCN-PR-0806S-0361

PATIENT
  Age: 37 Year
  Sex: Female

DRUGS (8)
  1. OMNISCAN [Suspect]
     Indication: RENAL MASS
     Route: 042
     Dates: start: 20010907, end: 20010907
  2. OMNISCAN [Suspect]
     Indication: THYROID CANCER
     Route: 042
     Dates: start: 20020820, end: 20020820
  3. OMNISCAN [Suspect]
     Indication: ERYTHEMA
     Route: 042
     Dates: start: 20040422, end: 20040422
  4. OMNISCAN [Suspect]
     Indication: SWELLING
     Route: 042
     Dates: start: 20041025, end: 20041025
  5. OMNISCAN [Suspect]
     Indication: OSTEOMYELITIS
     Route: 042
     Dates: start: 20050406, end: 20050406
  6. OMNISCAN [Suspect]
     Indication: EYE PAIN
     Route: 042
     Dates: start: 20050614, end: 20050614
  7. OMNISCAN [Suspect]
     Indication: SICKLE CELL ANAEMIA
  8. MAGNEVIST [Suspect]
     Indication: PRODUCT USED FOR UNKNOWN INDICATION
     Route: 042
     Dates: start: 19911124, end: 19911124

REACTIONS (1)
  - Nephrogenic systemic fibrosis [Not Recovered/Not Resolved]
